FAERS Safety Report 15733889 (Version 1)
Quarter: 2018Q4

REPORT INFORMATION
  Report Type: Spontaneous
  Country: US (occurrence: US)
  Receive Date: 20181218
  Receipt Date: 20181218
  Transmission Date: 20190205
  Serious: No
  Sender: FDA-Public Use
  Company Number: US-PFIZER INC-2017490675

PATIENT
  Age: 72 Year
  Sex: Female
  Weight: 58.97 kg

DRUGS (2)
  1. GENOTROPIN [Suspect]
     Active Substance: SOMATROPIN
     Indication: GROWTH HORMONE DEFICIENCY
     Dosage: 0.3 MG, ONCE A DAY
  2. GENOTROPIN [Suspect]
     Active Substance: SOMATROPIN
     Dosage: 0.3 MG, DAILY
     Dates: start: 201710

REACTIONS (3)
  - Blood glucose increased [Unknown]
  - Blood urea nitrogen/creatinine ratio increased [Unknown]
  - Expired device used [Unknown]

NARRATIVE: CASE EVENT DATE: 20171109
